FAERS Safety Report 9276404 (Version 2)
Quarter: 2013Q2

REPORT INFORMATION
  Report Type: Spontaneous
  Country: GB (occurrence: GB)
  Receive Date: 20130507
  Receipt Date: 20130507
  Transmission Date: 20140414
  Serious: Yes (Other)
  Sender: FDA-Public Use
  Company Number: GB-GLAXOSMITHKLINE-B0645799A

PATIENT
  Age: 26 Year
  Sex: Female
  Weight: 53 kg

DRUGS (10)
  1. HEPATITIS A VACCINE NOS [Suspect]
     Indication: PROPHYLAXIS
     Dosage: 1INJ SINGLE DOSE
     Route: 065
     Dates: start: 20100113, end: 20100113
  2. TETANUS VACCINE [Suspect]
     Indication: PROPHYLAXIS
     Dosage: 1INJ SINGLE DOSE
     Route: 065
     Dates: start: 20100113, end: 20100113
  3. PANDEMIC VACCINE H1N1 UNSPECIFIED [Suspect]
     Indication: PROPHYLAXIS
     Dosage: 1INJ SINGLE DOSE
     Route: 065
     Dates: start: 20100129, end: 20100129
  4. TYPHOID VACCINE [Suspect]
     Indication: PROPHYLAXIS
     Dosage: 1INJ SINGLE DOSE
     Route: 030
     Dates: start: 20100113, end: 20100113
  5. TETANUS + DIPHTHERIA VACCINE [Suspect]
     Indication: PROPHYLAXIS
     Dosage: 1INJ SINGLE DOSE
     Route: 030
     Dates: start: 20100113, end: 20100113
  6. MALARONE [Suspect]
     Indication: MALARIA PROPHYLAXIS
     Dosage: 1TAB PER DAY
     Route: 048
     Dates: start: 20100217, end: 20100314
  7. COMBIVIR [Suspect]
     Indication: HIV TEST POSITIVE
     Route: 065
     Dates: start: 201007
  8. RITONAVIR [Suspect]
     Indication: HIV TEST POSITIVE
     Route: 065
     Dates: start: 201007
  9. SAQUINAVIR [Suspect]
     Indication: HIV TEST POSITIVE
     Route: 065
     Dates: start: 201007
  10. NICODERM CQ [Suspect]
     Indication: SMOKING CESSATION THERAPY
     Route: 062

REACTIONS (6)
  - Anaemia [Unknown]
  - Rash [Unknown]
  - Live birth [Unknown]
  - Exposure during pregnancy [Unknown]
  - Maternal exposure before pregnancy [Unknown]
  - Anaemia of pregnancy [None]
